FAERS Safety Report 5875106-0 (Version None)
Quarter: 2008Q3

REPORT INFORMATION
  Report Type: 
  Country: None (occurrence: None)
  Receive Date: 20080909
  Receipt Date: 20080904
  Transmission Date: 20090109
  Serious: Yes (Death, Hospitalization)
  Sender: FDA-Public Use
  Company Number: A0746361A

PATIENT
  Age: 67 Year
  Sex: Male
  Weight: 64 kg

DRUGS (2)
  1. SERETIDE DISKUS [Suspect]
     Route: 055
     Dates: start: 20070601, end: 20080809
  2. CANCER CHEMOTHERAPY [Concomitant]
     Dates: end: 20080701

REACTIONS (1)
  - LUNG NEOPLASM MALIGNANT [None]
